FAERS Safety Report 14405480 (Version 1)
Quarter: 2018Q1

REPORT INFORMATION
  Report Type: Spontaneous
  Country: CA (occurrence: CA)
  Receive Date: 20180118
  Receipt Date: 20180118
  Transmission Date: 20180509
  Serious: Yes (Hospitalization, Other)
  Sender: FDA-Public Use
  Company Number: CA-NAPPMUNDI-CAN-2018-0008295

PATIENT
  Age: 46 Year
  Sex: Male
  Weight: 83 kg

DRUGS (12)
  1. SOLIRIS [Suspect]
     Active Substance: ECULIZUMAB
     Dosage: 900 MG, 1 EVERY 12 DAYS
     Route: 042
  2. VENLAFAXINE [Concomitant]
     Active Substance: VENLAFAXINE HYDROCHLORIDE
  3. DILAUDID [Suspect]
     Active Substance: HYDROMORPHONE HYDROCHLORIDE
     Indication: ABDOMINAL PAIN
     Dosage: UNK UNK, Q4H (1 EVERY 4 HOURS())
     Route: 058
  4. FOLIC ACID. [Concomitant]
     Active Substance: FOLIC ACID
  5. POTASSIUM [Concomitant]
     Active Substance: POTASSIUM
  6. SOLIRIS [Suspect]
     Active Substance: ECULIZUMAB
     Dosage: 900 MG, 1 EVERY 2 WEEKS
     Route: 042
  7. SOLIRIS [Suspect]
     Active Substance: ECULIZUMAB
     Indication: PAROXYSMAL NOCTURNAL HAEMOGLOBINURIA
     Dosage: 600 MG, WEEKLY
     Route: 042
  8. MAGNESIUM [Concomitant]
     Active Substance: MAGNESIUM
  9. ADVIL [Concomitant]
     Active Substance: IBUPROFEN
  10. PRADAX [Concomitant]
     Active Substance: DABIGATRAN ETEXILATE MESYLATE
  11. DILAUDID [Suspect]
     Active Substance: HYDROMORPHONE HYDROCHLORIDE
     Indication: PAIN
     Dosage: 8 MG, PRN
     Route: 048
  12. SOLIRIS [Suspect]
     Active Substance: ECULIZUMAB
     Dosage: 900 MG, 1 EVERY 12 DAYS
     Route: 042

REACTIONS (10)
  - Abdominal pain [Not Recovered/Not Resolved]
  - Blood bilirubin increased [Not Recovered/Not Resolved]
  - Yellow skin [Not Recovered/Not Resolved]
  - Dysphagia [Not Recovered/Not Resolved]
  - Haemoglobin decreased [Not Recovered/Not Resolved]
  - Vomiting [Not Recovered/Not Resolved]
  - Chromaturia [Not Recovered/Not Resolved]
  - Dizziness [Not Recovered/Not Resolved]
  - Malaise [Not Recovered/Not Resolved]
  - Scleral discolouration [Not Recovered/Not Resolved]
